FAERS Safety Report 21113988 (Version 1)
Quarter: 2022Q3

REPORT INFORMATION
  Report Type: Spontaneous
  Country: US (occurrence: US)
  Receive Date: 20220721
  Receipt Date: 20220721
  Transmission Date: 20221026
  Serious: No
  Sender: FDA-Public Use
  Company Number: US-PERRIGO-22US000219

PATIENT
  Age: 70 Year
  Sex: Male
  Weight: 102.04 kg

DRUGS (3)
  1. MINOXIDIL [Suspect]
     Active Substance: MINOXIDIL
     Indication: Alopecia
     Dosage: 1 ML, QD
     Route: 061
     Dates: start: 202109, end: 202110
  2. MINOXIDIL [Suspect]
     Active Substance: MINOXIDIL
     Dosage: 1 ML, QD
     Route: 061
     Dates: start: 202111, end: 20211221
  3. ASPIRIN [Concomitant]
     Active Substance: ASPIRIN
     Indication: Product used for unknown indication
     Dosage: UNK
     Route: 065
     Dates: start: 2019

REACTIONS (6)
  - Application site ulcer [Recovered/Resolved]
  - Chest pain [Unknown]
  - Heart rate increased [Unknown]
  - Application site pain [Recovered/Resolved]
  - Application site pruritus [Recovered/Resolved]
  - Inappropriate schedule of product administration [Recovered/Resolved]

NARRATIVE: CASE EVENT DATE: 20210901
